FAERS Safety Report 16342957 (Version 1)
Quarter: 2019Q2

REPORT INFORMATION
  Report Type: Spontaneous
  Country: US (occurrence: US)
  Receive Date: 20190522
  Receipt Date: 20190522
  Transmission Date: 20190711
  Serious: Yes (Hospitalization)
  Sender: FDA-Public Use
  Company Number: US-IPSEN BIOPHARMACEUTICALS, INC.-2019-07814

PATIENT
  Age: 54 Year
  Sex: Female

DRUGS (9)
  1. OMEGA XL IMMUNE BOOSTER [Concomitant]
  2. CLONAZEPAM. [Concomitant]
     Active Substance: CLONAZEPAM
     Indication: ANXIETY
  3. DYSPORT [Suspect]
     Active Substance: ABOBOTULINUMTOXINA
     Indication: OFF LABEL USE
  4. BOTOX [Suspect]
     Active Substance: ONABOTULINUMTOXINA
     Indication: SKIN COSMETIC PROCEDURE
     Dates: start: 20190207, end: 20190207
  5. FLONASE [Concomitant]
     Active Substance: FLUTICASONE PROPIONATE
  6. DYSPORT [Suspect]
     Active Substance: ABOBOTULINUMTOXINA
     Indication: SKIN WRINKLING
  7. DYSPORT [Suspect]
     Active Substance: ABOBOTULINUMTOXINA
     Indication: SKIN WRINKLING
  8. DYSPORT [Suspect]
     Active Substance: ABOBOTULINUMTOXINA
     Indication: SKIN WRINKLING
     Dosage: 69 IU
     Route: 058
     Dates: start: 20190207, end: 20190207
  9. DYSPORT [Suspect]
     Active Substance: ABOBOTULINUMTOXINA
     Indication: SKIN WRINKLING

REACTIONS (38)
  - Influenza like illness [Not Recovered/Not Resolved]
  - Eyelid ptosis [Not Recovered/Not Resolved]
  - Vision blurred [Not Recovered/Not Resolved]
  - Blood pressure fluctuation [Not Recovered/Not Resolved]
  - Hyperhidrosis [Not Recovered/Not Resolved]
  - Product preparation error [Unknown]
  - Fall [Unknown]
  - Dizziness [Not Recovered/Not Resolved]
  - Fatigue [Not Recovered/Not Resolved]
  - Neck pain [Not Recovered/Not Resolved]
  - Off label use [Unknown]
  - Off label use [Unknown]
  - Dysphonia [Not Recovered/Not Resolved]
  - Nervousness [Not Recovered/Not Resolved]
  - Off label use [Unknown]
  - Fatigue [Not Recovered/Not Resolved]
  - Headache [Not Recovered/Not Resolved]
  - Tremor [Not Recovered/Not Resolved]
  - Dry mouth [Not Recovered/Not Resolved]
  - White blood cell count decreased [Not Recovered/Not Resolved]
  - Headache [Not Recovered/Not Resolved]
  - Muscular weakness [Not Recovered/Not Resolved]
  - Discomfort [Not Recovered/Not Resolved]
  - Urinary tract infection [Recovered/Resolved]
  - Asthenia [Not Recovered/Not Resolved]
  - Eye swelling [Not Recovered/Not Resolved]
  - Constipation [Recovered/Resolved]
  - Off label use [Unknown]
  - Heart rate irregular [Not Recovered/Not Resolved]
  - Myalgia [Not Recovered/Not Resolved]
  - Dysphonia [Not Recovered/Not Resolved]
  - Chest pain [Not Recovered/Not Resolved]
  - Dyspnoea [Not Recovered/Not Resolved]
  - Cardiac disorder [Not Recovered/Not Resolved]
  - Dyspnoea [Not Recovered/Not Resolved]
  - Muscular weakness [Not Recovered/Not Resolved]
  - Abdominal pain upper [Not Recovered/Not Resolved]
  - Dysphagia [Not Recovered/Not Resolved]

NARRATIVE: CASE EVENT DATE: 201902
